FAERS Safety Report 4555098-7 (Version None)
Quarter: 2004Q4

REPORT INFORMATION
  Report Type: 
  Country: None (occurrence: None)
  Receive Date: 20041217
  Receipt Date: 20040809
  Transmission Date: 20050328
  Serious: No
  Sender: FDA-Public Use
  Company Number: 2004-BP-05518BP

PATIENT
  Age: 70 Year
  Sex: Male

DRUGS (4)
  1. SPIRIVA [Suspect]
     Indication: CHRONIC OBSTRUCTIVE AIRWAYS DISEASE
     Dosage: 18 MCG (18 MCG, 1 CAP OD), IH
     Route: 055
     Dates: start: 20040601
  2. ADVAIR (SERETIDE MITE) [Concomitant]
  3. COMBIVENT [Concomitant]
  4. ALBUTEROL NEBS (SALBUTAMOL) [Concomitant]

REACTIONS (4)
  - DEPRESSED MOOD [None]
  - DYSPNOEA [None]
  - HEADACHE [None]
  - INSOMNIA [None]
